FAERS Safety Report 9512226 (Version 1)
Quarter: 2013Q3

REPORT INFORMATION
  Report Type: Spontaneous
  Country: JP (occurrence: JP)
  Receive Date: 20130910
  Receipt Date: 20130910
  Transmission Date: 20140515
  Serious: Yes (Hospitalization, Other)
  Sender: FDA-Public Use
  Company Number: PHHY2013JP095946

PATIENT
  Sex: Female

DRUGS (3)
  1. EVEROLIMUS [Suspect]
  2. RITUXIMAB [Suspect]
     Indication: LYMPHOMA
     Dosage: 375 MG/M2, QW
  3. TACROLIMUS [Concomitant]

REACTIONS (2)
  - Lung disorder [Unknown]
  - Pneumonia [Unknown]
